FAERS Safety Report 9675908 (Version 2)
Quarter: 2014Q2

REPORT INFORMATION
  Report Type: Spontaneous
  Country: FR (occurrence: FR)
  Receive Date: 20131107
  Receipt Date: 20140618
  Transmission Date: 20141212
  Serious: Yes (Hospitalization, Other)
  Sender: FDA-Public Use
  Company Number: FR-ABBVIE-13P-056-1165598-00

PATIENT
  Age: 39 Year
  Sex: Male

DRUGS (13)
  1. KALETRA 200/50 [Suspect]
     Indication: HIV INFECTION
     Route: 048
     Dates: start: 20030416, end: 20121121
  2. NORVIR [Suspect]
     Indication: HIV INFECTION
     Route: 048
     Dates: start: 20121121
  3. ISENTRESS [Suspect]
     Indication: HIV INFECTION
     Route: 048
     Dates: start: 20080905
  4. FLUOXETINE [Suspect]
     Indication: PRODUCT USED FOR UNKNOWN INDICATION
     Route: 048
     Dates: start: 2010
  5. PREZISTA [Suspect]
     Indication: HIV INFECTION
     Route: 048
     Dates: start: 20121121
  6. UVEDOSE [Concomitant]
     Indication: PRODUCT USED FOR UNKNOWN INDICATION
     Dates: start: 20091218
  7. CEFUROXIME [Concomitant]
     Indication: PRODUCT USED FOR UNKNOWN INDICATION
     Dates: start: 20100219, end: 20100430
  8. CYMBALTA [Concomitant]
     Indication: PRODUCT USED FOR UNKNOWN INDICATION
     Dates: start: 20110816, end: 20120425
  9. LAROXYL [Concomitant]
     Indication: PRODUCT USED FOR UNKNOWN INDICATION
     Dates: start: 20110816, end: 20120926
  10. FENOFIBRATE [Concomitant]
     Indication: PRODUCT USED FOR UNKNOWN INDICATION
     Dates: start: 20110816, end: 20120926
  11. ESOMEPRAZOLE [Concomitant]
     Indication: PRODUCT USED FOR UNKNOWN INDICATION
     Dates: start: 20130125
  12. LYRICA [Concomitant]
     Indication: PRODUCT USED FOR UNKNOWN INDICATION
     Dates: start: 20130125
  13. OXYCONTIN [Concomitant]
     Indication: PRODUCT USED FOR UNKNOWN INDICATION
     Dates: start: 20130125

REACTIONS (19)
  - Pancreatitis relapsing [Recovered/Resolved]
  - Chest pain [Unknown]
  - Cough [Unknown]
  - Painful respiration [Unknown]
  - Blood pressure increased [Unknown]
  - Alcoholic pancreatitis [Unknown]
  - Musculoskeletal pain [Not Recovered/Not Resolved]
  - Abdominal pain upper [Not Recovered/Not Resolved]
  - Nephrolithiasis [Unknown]
  - Alcoholic pancreatitis [Unknown]
  - Abdominal pain [Unknown]
  - Decreased appetite [Unknown]
  - Pancreatitis chronic [Unknown]
  - Pancreatic calcification [Unknown]
  - Pseudocyst [Unknown]
  - Pancreatic necrosis [Unknown]
  - Pancreatitis [Unknown]
  - Pancreatitis acute [Unknown]
  - Pancreatic calcification [Unknown]
